FAERS Safety Report 20735856 (Version 2)
Quarter: 2022Q2

REPORT INFORMATION
  Report Type: Spontaneous
  Country: US (occurrence: US)
  Receive Date: 20220421
  Receipt Date: 20220503
  Transmission Date: 20220721
  Serious: Yes (Hospitalization)
  Sender: FDA-Public Use
  Company Number: US-TEVA-2022-US-2028324

PATIENT
  Age: 78 Year
  Sex: Female

DRUGS (5)
  1. AMIODARONE [Suspect]
     Active Substance: AMIODARONE
     Indication: Atrial flutter
     Route: 065
  2. INFLIXIMAB [Suspect]
     Active Substance: INFLIXIMAB
     Indication: Psoriatic arthropathy
     Route: 050
  3. DIGOXIN [Suspect]
     Active Substance: DIGOXIN
     Indication: Atrial flutter
     Route: 065
  4. PREDNISONE [Concomitant]
     Active Substance: PREDNISONE
     Indication: Pericardial effusion
     Dosage: HIGH-DOSE
     Route: 065
  5. COLCHICINE [Concomitant]
     Active Substance: COLCHICINE
     Indication: Pericardial effusion
     Dosage: HIGH-DOSE
     Route: 065

REACTIONS (6)
  - Pericardial effusion [Recovered/Resolved]
  - Pericarditis [Recovered/Resolved]
  - Atrial flutter [Recovered/Resolved]
  - Cardiac disorder [Unknown]
  - Ventricular hypokinesia [Unknown]
  - Drug ineffective [Unknown]
